FAERS Safety Report 16919831 (Version 1)
Quarter: 2019Q4

REPORT INFORMATION
  Report Type: Spontaneous
  Country: US (occurrence: US)
  Receive Date: 20190822
  Receipt Date: 20190822
  Transmission Date: 20200122
  Serious: No
  Sender: FDA-Public Use
  Company Number: None

PATIENT
  Age: 22 Month
  Sex: Female
  Weight: 12.7 kg

DRUGS (1)
  1. RASUVO [Suspect]
     Active Substance: METHOTREXATE SODIUM
     Indication: JUVENILE IDIOPATHIC ARTHRITIS
     Dosage: ?          OTHER DOSE:7.5MG;OTHER FREQUENCY:UNKNOWN;?
     Route: 058
     Dates: start: 20190822

REACTIONS (1)
  - Product use issue [None]

NARRATIVE: CASE EVENT DATE: 20190822
